FAERS Safety Report 7749375-6 (Version None)
Quarter: 2011Q3

REPORT INFORMATION
  Report Type: 
  Country: None (occurrence: None)
  Receive Date: 20110909
  Receipt Date: 20110829
  Transmission Date: 20111222
  Serious: Yes (Disabling)
  Sender: FDA-Public Use
  Company Number: 2011MA012915

PATIENT
  Age: 48 Year
  Sex: Female

DRUGS (2)
  1. UNSPECIFIED SEDATIVE [Concomitant]
  2. DIAZEPAM [Suspect]
     Dates: start: 19950101

REACTIONS (2)
  - NEUROPATHY PERIPHERAL [None]
  - PARAESTHESIA [None]
